FAERS Safety Report 22218129 (Version 2)
Quarter: 2023Q2

REPORT INFORMATION
  Report Type: Spontaneous
  Country: IT (occurrence: IT)
  Receive Date: 20230417
  Receipt Date: 20230420
  Transmission Date: 20230721
  Serious: Yes (Other)
  Sender: FDA-Public Use
  Company Number: IT-MLMSERVICE-20230403-4201451-1

PATIENT
  Age: 33 Year
  Sex: Female

DRUGS (3)
  1. VINCRISTINE SULFATE [Suspect]
     Active Substance: VINCRISTINE SULFATE
     Indication: Nephroblastoma
     Dosage: (1.5 MG/M2, MAXIMUM 2 MG), WEEKLY AT 1, 3 AND 5
     Route: 042
     Dates: start: 2019, end: 2019
  2. DOXORUBICIN HYDROCHLORIDE [Suspect]
     Active Substance: DOXORUBICIN HYDROCHLORIDE
     Indication: Nephroblastoma
     Dosage: 50 MG/M2, AT WEEKS 1 AND 5
     Route: 042
     Dates: start: 2019, end: 2019
  3. ACTINOMYCIN D [Suspect]
     Active Substance: DACTINOMYCIN
     Indication: Nephroblastoma
     Dosage: (45 MG/KG, MAXIMUM 2 MG) AT WEEKS 1, 3, AND 5
     Route: 042
     Dates: start: 2019, end: 2019

REACTIONS (4)
  - Neutropenia [Unknown]
  - Stomatitis [Unknown]
  - Anaemia [Unknown]
  - Alopecia [Unknown]

NARRATIVE: CASE EVENT DATE: 20190101
